FAERS Safety Report 10061054 (Version 2)
Quarter: 2014Q2

REPORT INFORMATION
  Report Type: Spontaneous
  Country: JP (occurrence: JP)
  Receive Date: 20140405
  Receipt Date: 20140422
  Transmission Date: 20141212
  Serious: Yes (Other)
  Sender: FDA-Public Use
  Company Number: JP-IPSEN BIOPHARMACEUTICALS, INC.-2014-1610

PATIENT
  Age: 25 Year
  Sex: Female

DRUGS (5)
  1. SOMATULINE 90MG [Suspect]
     Indication: ACROMEGALY
     Dosage: 90 MG
     Route: 058
     Dates: start: 20130412, end: 20140314
  2. SOMAVERT [Concomitant]
     Indication: ACROMEGALY
     Route: 058
     Dates: start: 20110428
  3. CABASER [Concomitant]
     Indication: ACROMEGALY
     Route: 048
     Dates: start: 20110325
  4. PREMARIN [Concomitant]
     Indication: MENSTRUATION IRREGULAR
     Route: 048
     Dates: start: 20111118
  5. PROGESSTON [Concomitant]
     Indication: MENSTRUATION IRREGULAR
     Route: 048
     Dates: start: 20111118

REACTIONS (1)
  - Glycosylated haemoglobin increased [Not Recovered/Not Resolved]
